FAERS Safety Report 13061449 (Version 2)
Quarter: 2019Q1

REPORT INFORMATION
  Report Type: Report from Study
  Country: US (occurrence: US)
  Receive Date: 20161226
  Receipt Date: 20190115
  Transmission Date: 20190417
  Serious: Yes (Hospitalization, Disabling, Other)
  Sender: FDA-Public Use
  Company Number: US-AMGEN-USASP2016180164

PATIENT
  Sex: Female

DRUGS (17)
  1. ENBREL [Suspect]
     Active Substance: ETANERCEPT
     Indication: RHEUMATOID ARTHRITIS
     Dosage: 50 MG, QWK
     Route: 065
     Dates: start: 2009
  2. METHOTREXATE. [Concomitant]
     Active Substance: METHOTREXATE
     Dosage: UNK
     Dates: start: 2002
  3. VITAMIN B12 [Concomitant]
     Active Substance: CYANOCOBALAMIN
     Dosage: UNK
  4. KEFLEX [Concomitant]
     Active Substance: CEPHALEXIN
     Dosage: UNK
     Dates: start: 2014
  5. TOPROL XL [Concomitant]
     Active Substance: METOPROLOL SUCCINATE
     Dosage: UNK
     Dates: start: 2006
  6. PREDNISONE. [Concomitant]
     Active Substance: PREDNISONE
     Dosage: UNK
  7. VITAMIN D [Concomitant]
     Active Substance: CHOLECALCIFEROL
     Dosage: UNK
  8. PLAQUENIL [Concomitant]
     Active Substance: HYDROXYCHLOROQUINE SULFATE
     Dosage: UNK
     Dates: start: 1987
  9. FOLIC ACID. [Concomitant]
     Active Substance: FOLIC ACID
     Dosage: UNK
     Dates: start: 2017
  10. VICODIN [Concomitant]
     Active Substance: ACETAMINOPHEN\HYDROCODONE BITARTRATE
     Dosage: UNK UNK, AS NECESSARY
  11. VOLTAREN [Concomitant]
     Active Substance: DICLOFENAC SODIUM
     Dosage: UNK
  12. PAXIL [Concomitant]
     Active Substance: PAROXETINE HYDROCHLORIDE
     Dosage: UNK
     Dates: start: 2018
  13. CLINORIL [Concomitant]
     Active Substance: SULINDAC
     Dosage: UNK
  14. CALCIUM [Concomitant]
     Active Substance: CALCIUM
     Dosage: UNK
  15. PEPCID [Concomitant]
     Active Substance: FAMOTIDINE
     Dosage: UNK
  16. MAGNESIUM OXIDE. [Concomitant]
     Active Substance: MAGNESIUM OXIDE
     Dosage: UNK
  17. ARICEPT [Concomitant]
     Active Substance: DONEPEZIL HYDROCHLORIDE
     Dosage: UNK
     Dates: start: 2016

REACTIONS (9)
  - Surgical failure [Unknown]
  - Wrong technique in product usage process [Unknown]
  - Hypoacusis [Unknown]
  - Glaucoma [Unknown]
  - Urinary tract infection [Unknown]
  - Memory impairment [Unknown]
  - Rotator cuff syndrome [Unknown]
  - Corneal dystrophy [Unknown]
  - Product storage error [Unknown]

NARRATIVE: CASE EVENT DATE: 2009
